FAERS Safety Report 8451265-0 (Version None)
Quarter: 2012Q2

REPORT INFORMATION
  Report Type: 
  Country: None (occurrence: None)
  Receive Date: 20120620
  Receipt Date: 20120306
  Transmission Date: 20120825
  Serious: No
  Sender: FDA-Public Use
  Company Number: US-VERTEX PHARMACEUTICALS INC.-AE-2012-002084

PATIENT
  Sex: Female
  Weight: 54.48 kg

DRUGS (7)
  1. PEGASYS [Concomitant]
     Indication: HEPATITIS C
     Route: 058
     Dates: start: 20120131
  2. NORVASC [Concomitant]
     Indication: HYPERTENSION
     Route: 048
     Dates: end: 20120228
  3. RIBAVIRIN [Concomitant]
     Dates: start: 20120229
  4. RIBAVIRIN [Concomitant]
     Indication: HEPATITIS C
     Route: 048
     Dates: start: 20120131
  5. INCIVEK [Suspect]
     Indication: HEPATITIS C
     Route: 048
     Dates: start: 20120131
  6. OMEPRAZOLE [Concomitant]
     Indication: GASTROOESOPHAGEAL REFLUX DISEASE
     Route: 048
  7. ACETAMINOPHEN [Concomitant]
     Indication: PAIN
     Route: 048

REACTIONS (10)
  - NIGHT SWEATS [None]
  - ANAEMIA [None]
  - DIARRHOEA [None]
  - BLOOD MAGNESIUM ABNORMAL [None]
  - CRYING [None]
  - ANORECTAL DISCOMFORT [None]
  - NAUSEA [None]
  - CHILLS [None]
  - WEIGHT DECREASED [None]
  - BLOOD POTASSIUM ABNORMAL [None]
